FAERS Safety Report 8431620-5 (Version None)
Quarter: 2012Q2

REPORT INFORMATION
  Report Type: 
  Country: None (occurrence: None)
  Receive Date: 20120323
  Receipt Date: 20111020
  Transmission Date: 20120825
  Serious: Yes (Other)
  Sender: FDA-Public Use
  Company Number: 163-21880-11063620

PATIENT
  Age: 76 Year
  Sex: Male
  Weight: 81.6475 kg

DRUGS (11)
  1. DIGOXIN [Concomitant]
  2. REVLIMID [Suspect]
     Indication: LUNG NEOPLASM MALIGNANT
     Dosage: 15 MG, X 21 DAY, OFF 7, PO 10 MG, 21 DAYS ON, 7 DAYS OFF, PO
     Route: 048
     Dates: start: 20100720
  3. REVLIMID [Suspect]
     Indication: LUNG NEOPLASM MALIGNANT
     Dosage: 15 MG, X 21 DAY, OFF 7, PO 10 MG, 21 DAYS ON, 7 DAYS OFF, PO
     Route: 048
     Dates: start: 20110601
  4. VERAPAMIL [Concomitant]
  5. METOPROLOL TARTRATE [Concomitant]
  6. OMEPRAZOLE [Concomitant]
  7. ALKERAN [Concomitant]
  8. WARFARIN SODIUM [Concomitant]
  9. CELEBREX [Concomitant]
  10. LIPITOR [Concomitant]
  11. PREDNISONE [Concomitant]

REACTIONS (3)
  - ERYTHEMA [None]
  - NEUTROPENIA [None]
  - CELLULITIS [None]
